FAERS Safety Report 4909088-2 (Version None)
Quarter: 2006Q1

REPORT INFORMATION
  Report Type: 
  Country: None (occurrence: None)
  Receive Date: 20060213
  Receipt Date: 20060201
  Transmission Date: 20060701
  Serious: Yes (Life-Threatening)
  Sender: FDA-Public Use
  Company Number: GB-ABBOTT-06P-167-0324293-00

PATIENT

DRUGS (1)
  1. SEVOFLURANE [Suspect]
     Indication: DRUG USE FOR UNKNOWN INDICATION
     Dates: start: 20051005, end: 20051005

REACTIONS (2)
  - CARDIAC ARREST [None]
  - HYPOTENSION [None]
